FAERS Safety Report 4909158-9 (Version None)
Quarter: 2006Q1

REPORT INFORMATION
  Report Type: 
  Country: None (occurrence: None)
  Receive Date: 20060209
  Receipt Date: 20060209
  Transmission Date: 20060701
  Serious: Yes (Life-Threatening)
  Sender: FDA-Public Use
  Company Number: None

PATIENT
  Age: 69 Year
  Sex: Male

DRUGS (9)
  1. CAPTOPRIL [Suspect]
     Indication: CARDIAC FAILURE CONGESTIVE
     Dosage: 50MG EVERY 8 HOURS PO
     Route: 048
  2. PIPERCILLIN/TAZOBACTA 2.25GM [Suspect]
     Indication: UROSEPSIS
     Dosage: 2.25GM EVERY 8 HOURS IV BOLUS
     Route: 040
     Dates: start: 20041004, end: 20041004
  3. FUROSEMIDE [Concomitant]
  4. PANTOPRAZOLE [Concomitant]
  5. VANCOMYCIN [Concomitant]
  6. WARFARIN [Concomitant]
  7. TAMSULOSIN HCL [Concomitant]
  8. AMLODIPINE [Concomitant]
  9. CARVEDILOL [Concomitant]

REACTIONS (4)
  - ANGIONEUROTIC OEDEMA [None]
  - DROOLING [None]
  - OBSTRUCTIVE AIRWAYS DISORDER [None]
  - SWOLLEN TONGUE [None]
